FAERS Safety Report 4988371-9 (Version None)
Quarter: 2006Q2

REPORT INFORMATION
  Report Type: 
  Country: None (occurrence: None)
  Receive Date: 20060502
  Receipt Date: 20060425
  Transmission Date: 20061013
  Serious: Yes (Hospitalization)
  Sender: FDA-Public Use
  Company Number: US-JNJFOC-20060307159

PATIENT
  Sex: Female
  Weight: 91.17 kg

DRUGS (20)
  1. DURAGESIC-100 [Suspect]
     Dosage: 150 UG/HR (ONE 100 UG/HR PATCH AND ONE 50 UG/HR PATCH) ONCE EVERY 72 HOURS
     Route: 062
  2. DURAGESIC-100 [Suspect]
     Route: 062
  3. AMBIEN CR [Concomitant]
     Indication: SLEEP DISORDER
     Route: 048
  4. BACLOFEN [Concomitant]
     Indication: MUSCLE SPASMS
     Route: 048
  5. CLARITIN [Concomitant]
     Route: 048
  6. ADVAIR DISKUS 100/50 [Concomitant]
     Route: 055
  7. ADVAIR DISKUS 100/50 [Concomitant]
     Indication: CHRONIC OBSTRUCTIVE PULMONARY DISEASE
     Dosage: 55/100, TWICE PER DAY INHALED
     Route: 055
  8. OXYCODONE [Concomitant]
     Dosage: 30-45 MG DOSE,  TWO TO THREE 15 MG TABLETS EVERY 4 HOURS
     Route: 048
  9. COLACE [Concomitant]
     Route: 048
  10. NEXIUM [Concomitant]
     Route: 048
  11. NEURONTIN [Concomitant]
     Indication: NEUROPATHY
     Route: 048
  12. PROZAC [Concomitant]
     Indication: DEPRESSION
     Route: 048
  13. COMBIVENT [Concomitant]
     Route: 055
  14. COMBIVENT [Concomitant]
     Dosage: 14.7 GM, TWO PUFFS TWICE DAILY AS NEEDED
     Route: 055
  15. K-DUR 10 [Concomitant]
     Indication: FLUID RETENTION
     Route: 048
  16. LASIX [Concomitant]
     Indication: FLUID RETENTION
     Route: 048
  17. TEGRETOL [Concomitant]
     Route: 048
  18. ACYCLOVIR [Concomitant]
  19. XALATAN [Concomitant]
     Indication: GLAUCOMA
     Dosage: 0.005% (50 UG/ML), TWICE DAILY
     Route: 047
  20. AMITRIPTYLINE/KETAMINE [Concomitant]
     Indication: PAIN MANAGEMENT
     Dosage: AMITRIPTYLINE/ KETAMINE; 2 PERCENT/ 5 PERCENT CREAM, TWICE DAILY
     Route: 061

REACTIONS (4)
  - CHRONIC OBSTRUCTIVE PULMONARY DISEASE [None]
  - LARYNGOTRACHEO BRONCHITIS [None]
  - PAIN [None]
  - STAPHYLOCOCCAL INFECTION [None]
